FAERS Safety Report 4415224-7 (Version None)
Quarter: 2004Q3

REPORT INFORMATION
  Report Type: 
  Country: None (occurrence: None)
  Receive Date: 20040804
  Receipt Date: 20040723
  Transmission Date: 20050211
  Serious: Yes (Hospitalization)
  Sender: FDA-Public Use
  Company Number: JPKYO-S-20040022

PATIENT
  Age: 57 Year
  Sex: Female

DRUGS (7)
  1. NAVELBINE [Suspect]
     Dosage: 39MG PER DAY
     Route: 042
     Dates: start: 20040322, end: 20040322
  2. CISPLATIN [Concomitant]
     Dates: start: 20040322, end: 20040322
  3. DECADRON [Concomitant]
     Dates: start: 20040322
  4. ZOFRAN [Concomitant]
     Dates: start: 20040322, end: 20040322
  5. PURSENNID [Concomitant]
     Dates: start: 20040322
  6. CODEINE PHOSPHATE [Concomitant]
  7. BROCIN [Concomitant]
     Dates: start: 20040322, end: 20040324

REACTIONS (9)
  - ALANINE AMINOTRANSFERASE INCREASED [None]
  - ASPARTATE AMINOTRANSFERASE INCREASED [None]
  - CHEST X-RAY ABNORMAL [None]
  - CHILLS [None]
  - COUGH [None]
  - CYANOSIS [None]
  - DYSPNOEA [None]
  - INTERSTITIAL LUNG DISEASE [None]
  - PYREXIA [None]
